FAERS Safety Report 13518336 (Version 1)
Quarter: 2017Q2

REPORT INFORMATION
  Report Type: Spontaneous
  Country: US (occurrence: US)
  Receive Date: 20170505
  Receipt Date: 20170505
  Transmission Date: 20170830
  Serious: Yes (Other)
  Sender: FDA-Public Use
  Company Number: None

PATIENT
  Age: 30 Year
  Sex: Female
  Weight: 101.2 kg

DRUGS (1)
  1. CLOMIPHENE CITRATE. [Suspect]
     Active Substance: CLOMIPHENE CITRATE
     Indication: OVULATION INDUCTION
     Route: 048
     Dates: start: 20170416, end: 20170420

REACTIONS (2)
  - Visual impairment [None]
  - Vision blurred [None]

NARRATIVE: CASE EVENT DATE: 20170417
